FAERS Safety Report 5078298-9 (Version None)
Quarter: 2006Q3

REPORT INFORMATION
  Report Type: 
  Country: None (occurrence: None)
  Receive Date: 20060811
  Receipt Date: 20060728
  Transmission Date: 20061208
  Serious: Yes (Life-Threatening, Hospitalization)
  Sender: FDA-Public Use
  Company Number: JP-MERCK-0608USA00590

PATIENT
  Age: 55 Year
  Sex: Female
  Weight: 65 kg

DRUGS (10)
  1. FOSAMAX [Suspect]
     Indication: OSTEOPOROSIS
     Route: 048
     Dates: start: 20011012, end: 20050421
  2. ARAVA [Suspect]
     Indication: RHEUMATOID ARTHRITIS
     Route: 048
     Dates: start: 20030929, end: 20031023
  3. ARAVA [Suspect]
     Route: 048
     Dates: start: 20030926, end: 20030928
  4. ARAVA [Suspect]
     Route: 048
     Dates: start: 20031024, end: 20040213
  5. ARAVA [Suspect]
     Route: 048
     Dates: start: 20040214, end: 20041025
  6. VOLTAREN [Concomitant]
     Indication: ANTIINFLAMMATORY THERAPY
     Route: 048
     Dates: start: 20000609
  7. VOLTAREN [Concomitant]
     Indication: PAIN
     Route: 048
     Dates: start: 20000609
  8. MUCOSTA [Concomitant]
     Indication: PROPHYLAXIS
     Route: 048
     Dates: start: 20000609
  9. [THERAPY UNSPECIFIED] [Concomitant]
     Route: 065
  10. MEDROL [Concomitant]
     Indication: ANTIINFLAMMATORY THERAPY
     Route: 048
     Dates: start: 20000928

REACTIONS (1)
  - OVARIAN CANCER [None]
